FAERS Safety Report 9939575 (Version 1)
Quarter: 2014Q1

REPORT INFORMATION
  Report Type: Report from Study
  Country: US (occurrence: US)
  Receive Date: 20140303
  Receipt Date: 20140303
  Transmission Date: 20141002
  Serious: No
  Sender: FDA-Public Use
  Company Number: US-ABBVIE-13P-163-1035594-00

PATIENT
  Age: 52 Year
  Sex: Male

DRUGS (8)
  1. HUMIRA [Suspect]
     Indication: RHEUMATOID ARTHRITIS
     Dates: start: 201210
  2. METHOTREXATE [Concomitant]
     Indication: PRODUCT USED FOR UNKNOWN INDICATION
  3. ZOLPIDEM [Concomitant]
     Indication: INSOMNIA
  4. BUPROPION [Concomitant]
     Indication: DEPRESSION
  5. FOLIC ACID [Concomitant]
     Indication: PRODUCT USED FOR UNKNOWN INDICATION
     Dosage: 1MG DAILY
  6. PILOCARPINE [Concomitant]
     Indication: DRY MOUTH
     Dosage: 5MG DAILY
  7. GABAPENTIN [Concomitant]
     Indication: PAIN
  8. HYDROCODONE [Concomitant]
     Indication: PAIN
     Dosage: 10/325

REACTIONS (2)
  - Injection site pain [Recovered/Resolved]
  - Injection site swelling [Recovered/Resolved]
